FAERS Safety Report 25157527 (Version 4)
Quarter: 2025Q3

REPORT INFORMATION
  Report Type: Spontaneous
  Country: US (occurrence: US)
  Receive Date: 20250403
  Receipt Date: 20250822
  Transmission Date: 20251020
  Serious: No
  Sender: BLUEPRINT MEDICINES
  Company Number: US-Blueprint Medicines Corporation-2025-AER-00631

PATIENT
  Age: 28 Year
  Sex: Male

DRUGS (1)
  1. AYVAKIT [Suspect]
     Active Substance: AVAPRITINIB
     Indication: Haematopoietic neoplasm
     Route: 065

REACTIONS (14)
  - Abdominal pain lower [Unknown]
  - Condition aggravated [Unknown]
  - Anxiety [Unknown]
  - Stress [Unknown]
  - Abdominal pain [Unknown]
  - Constipation [Unknown]
  - Blood alkaline phosphatase increased [Unknown]
  - Gastrointestinal pain [Unknown]
  - Diarrhoea [Unknown]
  - Arthralgia [Unknown]
  - Abdominal pain upper [Unknown]
  - Chest pain [Unknown]
  - Tension headache [Unknown]
  - Off label use [Unknown]

NARRATIVE: CASE EVENT DATE: 20250401
